FAERS Safety Report 14482081 (Version 1)
Quarter: 2018Q1

REPORT INFORMATION
  Report Type: Spontaneous
  Country: US (occurrence: US)
  Receive Date: 20180202
  Receipt Date: 20180202
  Transmission Date: 20180509
  Serious: No
  Sender: FDA-Public Use
  Company Number: US-009507513-1801USA006783

PATIENT
  Sex: Female
  Weight: 49.89 kg

DRUGS (1)
  1. NEXPLANON [Suspect]
     Active Substance: ETONOGESTREL
     Indication: CONTRACEPTION
     Dosage: LEFT ARM
     Route: 059
     Dates: start: 201705

REACTIONS (4)
  - Vaginal discharge [Unknown]
  - Metrorrhagia [Unknown]
  - Menstrual disorder [Unknown]
  - Menstruation normal [Recovered/Resolved]

NARRATIVE: CASE EVENT DATE: 2017
